FAERS Safety Report 12340690 (Version 5)
Quarter: 2018Q1

REPORT INFORMATION
  Report Type: Spontaneous
  Country: US (occurrence: US)
  Receive Date: 20160506
  Receipt Date: 20180103
  Transmission Date: 20180508
  Serious: Yes (Other)
  Sender: FDA-Public Use
  Company Number: US-TEVA-657471USA

PATIENT
  Age: 75 Year
  Sex: Female
  Weight: 56.75 kg

DRUGS (25)
  1. LETROZOLE. [Suspect]
     Active Substance: LETROZOLE
     Indication: BREAST CANCER
     Dosage: 2.5 MILLIGRAM DAILY;
     Route: 048
     Dates: start: 20160123
  2. BIOTIN [Concomitant]
     Active Substance: BIOTIN
  3. PROCHLORPERAZINE MALEATE. [Concomitant]
     Active Substance: PROCHLORPERAZINE MALEATE
     Dosage: 1 Q6 FOR NAUSEA
     Route: 048
  4. COENZYME Q10 [Concomitant]
     Active Substance: UBIDECARENONE
     Route: 048
  5. GUAIFENESIN-CODEINE [Concomitant]
     Indication: COUGH
     Dosage: 100-10 MG/5ML PRN Q 4 -6 COUGH
  6. IBRANCE [Suspect]
     Active Substance: PALBOCICLIB
     Indication: BREAST CANCER METASTATIC
     Dosage: ONE A DAY BY MOUTH FOR 21 DAYS AND OFF FOR 1 WEEK
     Route: 048
     Dates: start: 20160123, end: 20170731
  7. ASCORBIC ACID (VIT C) [Concomitant]
     Dosage: 500 MILLIGRAM DAILY;
  8. CALCIUM CARBONATE VITAMIN D [Concomitant]
     Active Substance: CALCIUM CARBONATE\VITAMIN D
  9. CHOLECALCIFEROL [Concomitant]
     Active Substance: CHOLECALCIFEROL
     Dosage: 2000 IU (INTERNATIONAL UNIT) DAILY;
  10. IBUPROFEN. [Concomitant]
     Active Substance: IBUPROFEN
     Dosage: Q 4-6 AS NEEDED
  11. KRILL OIL [Concomitant]
     Active Substance: DIETARY SUPPLEMENT
     Dosage: 353 MILLIGRAM DAILY;
     Route: 048
  12. OMEPRAZOLE. [Concomitant]
     Active Substance: OMEPRAZOLE
     Indication: GASTROOESOPHAGEAL REFLUX DISEASE
     Dosage: 20 MILLIGRAM DAILY;
     Route: 048
     Dates: start: 2007
  13. ALPRAZOLAM. [Concomitant]
     Active Substance: ALPRAZOLAM
  14. ASPIRIN. [Concomitant]
     Active Substance: ASPIRIN
     Dosage: 81 MILLIGRAM DAILY;
     Route: 048
  15. MAGNESIUM [Concomitant]
     Active Substance: MAGNESIUM
     Dosage: 250 MILLIGRAM DAILY;
     Route: 048
  16. BENICAR HCT [Concomitant]
     Active Substance: HYDROCHLOROTHIAZIDE\OLMESARTAN MEDOXOMIL
     Indication: BLOOD PRESSURE ABNORMAL
     Dosage: 40/12.5MG
     Route: 048
     Dates: start: 2005
  17. MENAQUINONE-7 [Concomitant]
     Route: 048
  18. PROBIOTIC PRODUCT [Concomitant]
  19. DIPHENHYDRAMINE. [Concomitant]
     Active Substance: DIPHENHYDRAMINE
     Dosage: 12.5MG/5ML, 25 MG PO DAILY AS NEEDED FOR ALLERGIES
  20. LACTOBACILLUS RHAMNOSUS [Concomitant]
     Active Substance: LACTOBACILLUS RHAMNOSUS
     Route: 048
  21. ONDANSETRON HCI [Concomitant]
     Dosage: 1 Q8 PRN NAUSEA
     Route: 048
  22. TRAZODONE [Concomitant]
     Active Substance: TRAZODONE HYDROCHLORIDE
     Indication: SLEEP DISORDER
     Route: 048
     Dates: start: 2005
  23. CARVEDILOL. [Concomitant]
     Active Substance: CARVEDILOL
     Dates: start: 201510
  24. MUL TLVLTAMINS [Concomitant]
  25. OLMESARTAN MEDOXOMIL-HCTZ [Concomitant]
     Dosage: 40/12.5MG
     Route: 048

REACTIONS (15)
  - Breast cancer metastatic [Unknown]
  - Dry throat [Recovering/Resolving]
  - Fatigue [Recovered/Resolved]
  - Blood oestrogen decreased [Unknown]
  - Syncope [Unknown]
  - Cataract operation [Recovered/Resolved]
  - Fatigue [Recovering/Resolving]
  - Dyspnoea [Recovering/Resolving]
  - Nausea [Unknown]
  - Throat tightness [Recovered/Resolved]
  - Anxiety [Unknown]
  - Diarrhoea [Recovered/Resolved]
  - Myalgia [Unknown]
  - Oral pain [Recovered/Resolved]
  - Asthenia [Unknown]

NARRATIVE: CASE EVENT DATE: 201601
